FAERS Safety Report 4576028-8 (Version None)
Quarter: 2005Q1

REPORT INFORMATION
  Report Type: 
  Country: None (occurrence: None)
  Receive Date: 20050209
  Receipt Date: 20050208
  Transmission Date: 20050727
  Serious: Yes (Other)
  Sender: FDA-Public Use
  Company Number: PHNU2005DE00866

PATIENT
  Age: 39 Year
  Sex: Male

DRUGS (5)
  1. PROPRANOLOL [Concomitant]
     Dosage: 100 MG/DAY
     Route: 048
  2. DELIX [Concomitant]
     Dosage: 7.5 MG/DAY
     Route: 048
  3. CLOZARIL [Suspect]
     Indication: SCHIZOPHRENIA
     Dosage: UNKNOWN
     Route: 048
     Dates: start: 20050101
  4. CLOZARIL [Suspect]
     Dosage: 700 MG/DAY
     Route: 048
  5. LORAZEPAM [Concomitant]
     Dosage: UNKNOWN
     Route: 048

REACTIONS (2)
  - CATECHOLAMINES URINE INCREASED [None]
  - HYPERTENSIVE CRISIS [None]
